FAERS Safety Report 11572880 (Version 1)
Quarter: 2015Q3

REPORT INFORMATION
  Report Type: Spontaneous
  Country: PL (occurrence: PL)
  Receive Date: 20150929
  Receipt Date: 20150929
  Transmission Date: 20151125
  Serious: Yes (Other)
  Sender: FDA-Public Use
  Company Number: PL-BAXTER-2015BAX050053

PATIENT
  Age: 22 Year
  Sex: Male

DRUGS (32)
  1. TEMOZOLOMIDE. [Suspect]
     Active Substance: TEMOZOLOMIDE
     Indication: EPENDYMOMA MALIGNANT
     Dosage: 3 CYCLES
     Route: 065
     Dates: start: 2009
  2. TEMOZOLOMIDE. [Suspect]
     Active Substance: TEMOZOLOMIDE
     Indication: METASTATIC GLIOMA
  3. LOMUSTINE. [Suspect]
     Active Substance: LOMUSTINE
     Indication: METASTATIC GLIOMA
     Route: 065
  4. METHYLPREDNISOLONE. [Suspect]
     Active Substance: METHYLPREDNISOLONE
     Indication: EPENDYMOMA MALIGNANT
     Dosage: OCTOBER AND NOVEMBER 2009, 3 CYCLES
     Route: 065
     Dates: start: 200910
  5. METHYLPREDNISOLONE. [Suspect]
     Active Substance: METHYLPREDNISOLONE
     Indication: METASTATIC GLIOMA
     Route: 065
     Dates: start: 201103
  6. VINCRISTINE [Suspect]
     Active Substance: VINCRISTINE
     Route: 065
     Dates: start: 201103
  7. CISPLATIN. [Suspect]
     Active Substance: CISPLATIN
     Indication: METASTATIC GLIOMA
     Route: 065
     Dates: start: 201103
  8. LOMUSTINE. [Suspect]
     Active Substance: LOMUSTINE
     Route: 065
     Dates: start: 20120127
  9. CYTARABINE. [Suspect]
     Active Substance: CYTARABINE
     Indication: EPENDYMOMA MALIGNANT
     Dosage: OCTOBER AND NOVEMBER 2009, 3 CYCLES
     Route: 065
     Dates: start: 200910
  10. CYTARABINE. [Suspect]
     Active Substance: CYTARABINE
     Indication: METASTATIC GLIOMA
     Route: 065
     Dates: start: 201103
  11. LOMUSTINE. [Suspect]
     Active Substance: LOMUSTINE
     Indication: EPENDYMOMA MALIGNANT
     Dosage: OCTOBER AND NOVEMBER 2009, 3 CYCLES
     Route: 065
     Dates: start: 200910
  12. PROCARBAZINE [Suspect]
     Active Substance: PROCARBAZINE
     Route: 065
     Dates: start: 201103
  13. CARBOPLATIN. [Suspect]
     Active Substance: CARBOPLATIN
     Indication: METASTATIC GLIOMA
  14. ETOPOSIDE. [Suspect]
     Active Substance: ETOPOSIDE
     Indication: METASTATIC GLIOMA
  15. FOTEMUSTINE [Suspect]
     Active Substance: FOTEMUSTINE
     Indication: EPENDYMOMA MALIGNANT
     Dosage: 4 CYCLES
     Route: 065
  16. HOLOXAN [Suspect]
     Active Substance: IFOSFAMIDE
     Indication: METASTATIC GLIOMA
  17. DACARBAZINE. [Suspect]
     Active Substance: DACARBAZINE
     Indication: METASTATIC GLIOMA
     Route: 065
     Dates: start: 201103
  18. LOMUSTINE. [Suspect]
     Active Substance: LOMUSTINE
     Route: 065
     Dates: start: 201103
  19. HYDROXYUREA. [Suspect]
     Active Substance: HYDROXYUREA
     Indication: EPENDYMOMA MALIGNANT
     Dosage: OCTOBER AND NOVEMBER 2009, 3 CYCLES
     Route: 065
     Dates: start: 200910
  20. HYDROXYUREA. [Suspect]
     Active Substance: HYDROXYUREA
     Indication: METASTATIC GLIOMA
     Route: 065
     Dates: start: 201103
  21. ENDOXAN [Suspect]
     Active Substance: CYCLOPHOSPHAMIDE
     Indication: EPENDYMOMA MALIGNANT
     Route: 065
     Dates: start: 201108
  22. ENDOXAN [Suspect]
     Active Substance: CYCLOPHOSPHAMIDE
     Indication: METASTATIC GLIOMA
  23. VINCRISTINE [Suspect]
     Active Substance: VINCRISTINE
     Indication: EPENDYMOMA MALIGNANT
     Dosage: OCTOBER AND NOVEMBER 2009, 3 CYCLES
     Route: 065
     Dates: start: 200910
  24. PROCARBAZINE [Suspect]
     Active Substance: PROCARBAZINE
     Indication: METASTATIC GLIOMA
     Route: 065
  25. FOTEMUSTINE [Suspect]
     Active Substance: FOTEMUSTINE
     Indication: METASTATIC GLIOMA
  26. CISPLATIN. [Suspect]
     Active Substance: CISPLATIN
     Indication: EPENDYMOMA MALIGNANT
     Dosage: OCTOBER AND NOVEMBER 2009, 3 CYCLES
     Route: 065
     Dates: start: 200910
  27. HOLOXAN [Suspect]
     Active Substance: IFOSFAMIDE
     Indication: EPENDYMOMA MALIGNANT
     Dosage: 5 CYCLES
     Route: 065
     Dates: start: 200912, end: 201005
  28. DACARBAZINE. [Suspect]
     Active Substance: DACARBAZINE
     Indication: EPENDYMOMA MALIGNANT
     Dosage: OCTOBER AND NOVEMBER 2009, 3 CYCLES
     Route: 065
     Dates: start: 200910
  29. VINCRISTINE [Suspect]
     Active Substance: VINCRISTINE
     Indication: METASTATIC GLIOMA
     Route: 065
  30. PROCARBAZINE [Suspect]
     Active Substance: PROCARBAZINE
     Indication: EPENDYMOMA MALIGNANT
     Dosage: OCTOBER AND NOVEMBER 2009, 3 CYCLES
     Route: 065
     Dates: start: 200910
  31. CARBOPLATIN. [Suspect]
     Active Substance: CARBOPLATIN
     Indication: EPENDYMOMA MALIGNANT
     Dosage: 5 CYCLES
     Route: 065
     Dates: start: 200912, end: 201005
  32. ETOPOSIDE. [Suspect]
     Active Substance: ETOPOSIDE
     Indication: EPENDYMOMA MALIGNANT
     Dosage: 5 CYCLES
     Route: 065
     Dates: start: 200912, end: 201005

REACTIONS (14)
  - Malignant neoplasm progression [Unknown]
  - Metastases to skin [Unknown]
  - Pancytopenia [Unknown]
  - Condition aggravated [Unknown]
  - Hemianopia [Unknown]
  - Nervous system disorder [Unknown]
  - Recurrent cancer [Unknown]
  - Malignant neoplasm progression [Unknown]
  - Malignant neoplasm progression [Unknown]
  - Recurrent cancer [Unknown]
  - Skin flap necrosis [Unknown]
  - Metastases to skin [Unknown]
  - Malignant neoplasm progression [Unknown]
  - Hemiparesis [Unknown]

NARRATIVE: CASE EVENT DATE: 2010
